FAERS Safety Report 6551458-3 (Version None)
Quarter: 2010Q1

REPORT INFORMATION
  Report Type: 
  Country: None (occurrence: None)
  Receive Date: 20100126
  Receipt Date: 20090420
  Transmission Date: 20100710
  Serious: Yes (Other)
  Sender: FDA-Public Use
  Company Number: SE-CELGENEUS-150-20484-10011613

PATIENT
  Sex: Male
  Weight: 2.51 kg

DRUGS (4)
  1. INNOHEP [Suspect]
     Route: 064
     Dates: start: 20051229, end: 20060708
  2. IPREN [Concomitant]
     Route: 064
     Dates: end: 20060708
  3. PAROXETINE HCL [Concomitant]
     Route: 064
     Dates: end: 20060708
  4. SYNTOCINON [Concomitant]
     Route: 064
     Dates: end: 20060708

REACTIONS (2)
  - ASPHYXIA [None]
  - DRUG EXPOSURE DURING PREGNANCY [None]
